FAERS Safety Report 7234022-2 (Version None)
Quarter: 2011Q1

REPORT INFORMATION
  Report Type: 
  Country: None (occurrence: None)
  Receive Date: 20110113
  Receipt Date: 20110113
  Transmission Date: 20110831
  Serious: No
  Sender: FDA-Public Use
  Company Number: None

PATIENT
  Age: 82 Year
  Sex: Male
  Weight: 70.5 kg

DRUGS (1)
  1. HALOPERIDOL [Suspect]
     Indication: DELIRIUM
     Dosage: 2 MG PRN IM
     Route: 030
     Dates: start: 20101209, end: 20101209

REACTIONS (1)
  - RESPIRATORY DISTRESS [None]
